FAERS Safety Report 21869700 (Version 1)
Quarter: 2023Q1

REPORT INFORMATION
  Report Type: Spontaneous
  Country: US (occurrence: US)
  Receive Date: 20230117
  Receipt Date: 20230117
  Transmission Date: 20230418
  Serious: No
  Sender: FDA-Public Use
  Company Number: US-AUROBINDO-AUR-APL-2022-007006

PATIENT
  Age: 75 Year
  Sex: Female
  Weight: 104 kg

DRUGS (1)
  1. IBUPROFEN\PSEUDOEPHEDRINE HYDROCHLORIDE [Suspect]
     Active Substance: IBUPROFEN\PSEUDOEPHEDRINE HYDROCHLORIDE
     Indication: Sinus disorder
     Dosage: 1 DOSAGE FORM, ONCE A DAY
     Route: 065

REACTIONS (1)
  - Rash [Not Recovered/Not Resolved]
